FAERS Safety Report 7510239-4 (Version None)
Quarter: 2011Q2

REPORT INFORMATION
  Report Type: 
  Country: None (occurrence: None)
  Receive Date: 20110527
  Receipt Date: 20110519
  Transmission Date: 20111010
  Serious: Yes (Other)
  Sender: FDA-Public Use
  Company Number: PHHY2011GB44416

PATIENT
  Age: 51 Year
  Sex: Male

DRUGS (2)
  1. PRAVASTATIN [Suspect]
     Dosage: 40 MG, UNK
  2. FENOFIBRATE [Suspect]
     Dosage: 400 MG

REACTIONS (1)
  - HIGH DENSITY LIPOPROTEIN DECREASED [None]
